FAERS Safety Report 17467511 (Version 1)
Quarter: 2020Q1

REPORT INFORMATION
  Report Type: Spontaneous
  Country: KZ (occurrence: KZ)
  Receive Date: 20200227
  Receipt Date: 20200227
  Transmission Date: 20200409
  Serious: Yes (Other)
  Sender: FDA-Public Use
  Company Number: KZ-JNJFOC-20200234793

PATIENT
  Age: 84 Year
  Sex: Male

DRUGS (3)
  1. PRESTARIUM [PERINDOPRIL] [Concomitant]
     Dosage: 2.5 MG, UNK
  2. RIVAROXABAN [Suspect]
     Active Substance: RIVAROXABAN
     Indication: ATRIAL FIBRILLATION
     Dosage: 20 MG, UNK
     Route: 048
  3. CONCOR [Concomitant]
     Active Substance: BISOPROLOL FUMARATE
     Dosage: 2.5 MG, UNK

REACTIONS (1)
  - Gastric cancer stage IV [Unknown]
